FAERS Safety Report 8884478 (Version 2)
Quarter: 2012Q4

REPORT INFORMATION
  Report Type: 
  Country: DE (occurrence: DE)
  Receive Date: 20121104
  Receipt Date: 20121127
  Transmission Date: 20130627
  Serious: No
  Sender: FDA-Public Use
  Company Number: DE-SANOFI-AVENTIS-2012SA078983

PATIENT
  Age: 80 Year
  Sex: Female

DRUGS (3)
  1. CLEXANE [Suspect]
     Indication: THROMBOSIS
     Route: 065
  2. CLEXANE [Suspect]
     Indication: APOPLEXY
     Route: 065
  3. MARCUMAR [Concomitant]
     Indication: APOPLEXY
     Route: 048

REACTIONS (1)
  - Alopecia [Unknown]
